FAERS Safety Report 8370916-2 (Version None)
Quarter: 2012Q2

REPORT INFORMATION
  Report Type: 
  Country: None (occurrence: None)
  Receive Date: 20120518
  Receipt Date: 20111209
  Transmission Date: 20120825
  Serious: No
  Sender: FDA-Public Use
  Company Number: US-BAUSCH-2011BL008769

PATIENT
  Age: 64 Year
  Sex: Female

DRUGS (4)
  1. NASONEX [Concomitant]
  2. QVAR                                    /UNK/ [Concomitant]
  3. IPRATROPIUM BROMIDE [Suspect]
     Indication: RHINORRHOEA
     Route: 045
     Dates: start: 20080101, end: 20111101
  4. IPRATROPIUM BROMIDE [Suspect]
     Route: 045
     Dates: start: 20111101, end: 20111209

REACTIONS (1)
  - COUGH [None]
